FAERS Safety Report 21318744 (Version 3)
Quarter: 2023Q1

REPORT INFORMATION
  Report Type: Spontaneous
  Country: US (occurrence: US)
  Receive Date: 20220911
  Receipt Date: 20230224
  Transmission Date: 20230417
  Serious: No
  Sender: FDA-Public Use
  Company Number: US-SA-SAC20220809001706

PATIENT
  Age: 38 Year
  Sex: Female

DRUGS (30)
  1. DUPIXENT [Suspect]
     Active Substance: DUPILUMAB
     Indication: Asthma
     Dosage: 300 MG, QOW
     Route: 058
     Dates: start: 20171230
  2. DUPIXENT [Suspect]
     Active Substance: DUPILUMAB
     Indication: Dermatitis atopic
  3. ALBUTEROL SULFATE [Concomitant]
     Active Substance: ALBUTEROL SULFATE
  4. CEPHALEXIN [Concomitant]
     Active Substance: CEPHALEXIN
  5. CLARAVIS [Concomitant]
     Active Substance: ISOTRETINOIN
  6. CLINDAMYCIN PHOSPHATE [Concomitant]
     Active Substance: CLINDAMYCIN PHOSPHATE
  7. CLOBETASOL [Concomitant]
     Active Substance: CLOBETASOL
  8. ALBUTEROL [Concomitant]
     Active Substance: ALBUTEROL
  9. COMBIVENT [Concomitant]
     Active Substance: ALBUTEROL SULFATE\IPRATROPIUM BROMIDE
  10. DESOWEN [Concomitant]
     Active Substance: DESONIDE
  11. DIFLUCAN [Concomitant]
     Active Substance: FLUCONAZOLE
  12. DULERA [Concomitant]
     Active Substance: FORMOTEROL FUMARATE DIHYDRATE\MOMETASONE FUROATE
  13. ESCITALOPRAM [Concomitant]
     Active Substance: ESCITALOPRAM OXALATE
  14. EUTHYROX [Concomitant]
     Active Substance: LEVOTHYROXINE SODIUM
  15. FLONASE [Concomitant]
     Active Substance: FLUTICASONE PROPIONATE
  16. FLOVENT HFA [Concomitant]
     Active Substance: FLUTICASONE PROPIONATE
  17. FLUOXETINE [Concomitant]
     Active Substance: FLUOXETINE HYDROCHLORIDE
  18. GABAPENTIN [Concomitant]
     Active Substance: GABAPENTIN
  19. MOMETASONE [Concomitant]
     Active Substance: MOMETASONE
  20. MONTELUKAST [Concomitant]
     Active Substance: MONTELUKAST SODIUM
  21. MUPIROCIN [Concomitant]
     Active Substance: MUPIROCIN
  22. PREDNISONE [Concomitant]
     Active Substance: PREDNISONE
  23. RABEPRAZOLE [Concomitant]
     Active Substance: RABEPRAZOLE
  24. ROSUVASTATIN [Concomitant]
     Active Substance: ROSUVASTATIN
  25. SUCRALFATE [Concomitant]
     Active Substance: SUCRALFATE
  26. PREDNISONE [Concomitant]
     Active Substance: PREDNISONE
  27. HYDROXYZINE HYDROCHLORIDE [Concomitant]
     Active Substance: HYDROXYZINE HYDROCHLORIDE
  28. HYDROXYZINE HYDROCHLORIDE [Concomitant]
     Active Substance: HYDROXYZINE HYDROCHLORIDE
  29. LEVOTHYROXINE [Concomitant]
     Active Substance: LEVOTHYROXINE
  30. DOXYCYCLINE HYCLATE [Concomitant]
     Active Substance: DOXYCYCLINE HYCLATE

REACTIONS (2)
  - Impaired quality of life [Unknown]
  - Drug ineffective [Unknown]
